FAERS Safety Report 8293010 (Version 2)
Quarter: 2014Q1

REPORT INFORMATION
  Report Type: Spontaneous
  Country: US (occurrence: US)
  Receive Date: 20111215
  Receipt Date: 20140116
  Transmission Date: 20141002
  Serious: Yes (Life-Threatening, Other)
  Sender: FDA-Public Use
  Company Number: US-BAYER-2011-120485

PATIENT
  Age: 24 Year
  Sex: Female

DRUGS (11)
  1. YAZ [Suspect]
  2. YASMIN [Suspect]
  3. OCELLA [Suspect]
  4. QVAR [Concomitant]
     Dosage: 80 MCG/24HR, UNK
  5. PROTONIX [Concomitant]
     Dosage: 40 MG, UNK
  6. CARAFATE [Concomitant]
     Dosage: 2 TEASPOONS AT NIGHT
  7. VICODIN [Concomitant]
     Dosage: 500 MG, UNKEVERY 4-6 HOURS AS NEEDED.
  8. PROMETHAZINE W/CODEINE [Concomitant]
  9. DOXYCYCLINE HYCLATE [Concomitant]
  10. DIFFERIN [Concomitant]
     Dosage: UNK %, UNK
  11. MICROGESTIN FE [Concomitant]

REACTIONS (8)
  - Gallbladder non-functioning [None]
  - Organ failure [None]
  - Pain [None]
  - General physical health deterioration [None]
  - Anxiety [None]
  - Anhedonia [None]
  - Biliary dyskinesia [None]
  - Cholecystitis chronic [None]
